FAERS Safety Report 20188643 (Version 1)
Quarter: 2021Q4

REPORT INFORMATION
  Report Type: Report from Study
  Country: US (occurrence: US)
  Receive Date: 20211215
  Receipt Date: 20211215
  Transmission Date: 20220303
  Serious: Yes (Other)
  Sender: FDA-Public Use
  Company Number: US-UPSHER-SMITH LABORATORIES, LLC-2021USL00835

PATIENT
  Sex: Female
  Weight: 90.249 kg

DRUGS (17)
  1. AMIODARONE HYDROCHLORIDE [Suspect]
     Active Substance: AMIODARONE HYDROCHLORIDE
     Dosage: 2 TABLETS, 2X/DAY
     Route: 048
     Dates: start: 20210407, end: 20210416
  2. AMIODARONE HYDROCHLORIDE [Suspect]
     Active Substance: AMIODARONE HYDROCHLORIDE
     Dosage: 200 MG, 1X/DAY
     Route: 048
     Dates: start: 20210417, end: 20211022
  3. ENTRESTO [Concomitant]
     Active Substance: SACUBITRIL\VALSARTAN
     Dosage: UNK
     Dates: end: 20211022
  4. XANAX [Concomitant]
     Active Substance: ALPRAZOLAM
  5. WELLBUTRIN [Concomitant]
     Active Substance: BUPROPION HYDROCHLORIDE
  6. LIPITOR [Concomitant]
     Active Substance: ATORVASTATIN CALCIUM
  7. FLONASE [Concomitant]
     Active Substance: FLUTICASONE PROPIONATE
  8. ELIQUIS [Concomitant]
     Active Substance: APIXABAN
  9. LASIX [Concomitant]
     Active Substance: FUROSEMIDE
     Dosage: UNK, AS NEEDED
  10. PREDNISONE [Concomitant]
     Active Substance: PREDNISONE
     Dosage: UNK, AS NEEDED
  11. ASPIRIN [Concomitant]
     Active Substance: ASPIRIN
  12. NUCALA [Concomitant]
     Active Substance: MEPOLIZUMAB
  13. PRILOSEC [Concomitant]
     Active Substance: OMEPRAZOLE MAGNESIUM
  14. SINGULAIR [Concomitant]
     Active Substance: MONTELUKAST SODIUM
  15. XOPENEX [Concomitant]
     Active Substance: LEVALBUTEROL HYDROCHLORIDE
  16. ^PERSOROMIST^ [Concomitant]
  17. NYSTATIN [Concomitant]
     Active Substance: NYSTATIN

REACTIONS (4)
  - Vision blurred [Unknown]
  - Atelectasis [Unknown]
  - Toxicity to various agents [Unknown]
  - Renal impairment [Unknown]

NARRATIVE: CASE EVENT DATE: 20210101
